FAERS Safety Report 23338057 (Version 1)
Quarter: 2023Q4

REPORT INFORMATION
  Report Type: Spontaneous
  Country: US (occurrence: US)
  Receive Date: 20231226
  Receipt Date: 20231226
  Transmission Date: 20240109
  Serious: No
  Sender: FDA-Public Use
  Company Number: US-TAKEDA-2023TUS123784

PATIENT
  Sex: Female
  Weight: 115.65 kg

DRUGS (1)
  1. VYVANSE [Suspect]
     Active Substance: LISDEXAMFETAMINE DIMESYLATE
     Indication: Appetite disorder
     Dosage: UNK UNK, QD
     Route: 065

REACTIONS (1)
  - Glossodynia [Unknown]
